FAERS Safety Report 7020065-0 (Version None)
Quarter: 2010Q3

REPORT INFORMATION
  Report Type: 
  Country: None (occurrence: None)
  Receive Date: 20100929
  Receipt Date: 20100916
  Transmission Date: 20110219
  Serious: Yes (Hospitalization)
  Sender: FDA-Public Use
  Company Number: BE-BAYER-201039015GPV

PATIENT
  Age: 77 Year
  Sex: Female
  Weight: 87 kg

DRUGS (14)
  1. CAMPATH [Suspect]
     Indication: CHRONIC LYMPHOCYTIC LEUKAEMIA
     Route: 058
     Dates: start: 20100802, end: 20100901
  2. CACIT VITAMINE D3 [Concomitant]
     Dates: start: 20100705
  3. ALLOPURINOL [Concomitant]
     Dates: start: 20100802
  4. ALPRAZOLAM [Concomitant]
     Dates: start: 20100705
  5. NULYTELY [Concomitant]
     Dates: start: 20100705
  6. LEVOFLOXACIN [Concomitant]
     Dates: start: 20100719, end: 20100825
  7. PERIO AID MOUTHWASH [Concomitant]
     Dates: start: 20100803
  8. FLUCONAZOLE [Concomitant]
     Dates: start: 20100705
  9. LODOZ [Concomitant]
     Dates: start: 20100807
  10. RANITIDINE [Concomitant]
     Dates: start: 20100705
  11. PARACETAL [Concomitant]
     Dates: start: 20100806
  12. FUROSEMIDE [Concomitant]
  13. ACYCLOVIR [Concomitant]
     Dates: start: 20100802
  14. SULFAMETHOXAZOLE AND TRIMETHOPRIM [Concomitant]
     Dates: start: 20100802

REACTIONS (1)
  - LIVER FUNCTION TEST ABNORMAL [None]
